FAERS Safety Report 7126392-0 (Version None)
Quarter: 2010Q4

REPORT INFORMATION
  Report Type: 
  Country: None (occurrence: None)
  Receive Date: 20101129
  Receipt Date: 20101118
  Transmission Date: 20110411
  Serious: Yes (Hospitalization)
  Sender: FDA-Public Use
  Company Number: FR-JNJFOC-20100908039

PATIENT
  Sex: Male
  Weight: 62.8 kg

DRUGS (3)
  1. CONCERTA [Suspect]
     Indication: ATTENTION DEFICIT/HYPERACTIVITY DISORDER
     Dosage: 52+18 MG
     Route: 048
  2. CONCERTA [Suspect]
     Route: 048
  3. HUMEX [Concomitant]
     Indication: RHINITIS ALLERGIC
     Route: 048

REACTIONS (4)
  - AFFECTIVE DISORDER [None]
  - AGITATION [None]
  - HYPOMANIA [None]
  - MANIA [None]
